FAERS Safety Report 9334919 (Version 1)
Quarter: 2013Q2

REPORT INFORMATION
  Report Type: Spontaneous
  Country: US (occurrence: US)
  Receive Date: 20130606
  Receipt Date: 20130606
  Transmission Date: 20140414
  Serious: No
  Sender: FDA-Public Use
  Company Number: US-ASTRAZENECA-2013SE37412

PATIENT
  Sex: Female

DRUGS (16)
  1. CRESTOR [Suspect]
     Route: 048
  2. LIPITOR [Suspect]
     Route: 048
  3. ZOCOR [Suspect]
     Route: 065
  4. METOPROLOL TARTRATE [Concomitant]
  5. PLAVIX [Concomitant]
  6. WOMENS [Concomitant]
  7. INDAPAMIDE [Concomitant]
  8. GLYBURIDE-METFORMIN [Concomitant]
  9. HYDROCODONE-ACETAMINOPHEN [Concomitant]
     Indication: PAIN
  10. PANTOPRAZOLE [Concomitant]
  11. ASPIRIN [Concomitant]
  12. XANAX [Concomitant]
     Indication: ANXIETY
  13. XANAX [Concomitant]
     Indication: INSOMNIA
  14. NORVASC [Concomitant]
  15. AMBIEN [Concomitant]
  16. TIMOLOL [Concomitant]

REACTIONS (5)
  - Anxiety [Unknown]
  - Pain [Unknown]
  - Blood glucose abnormal [Unknown]
  - Insomnia [Unknown]
  - Myalgia [Unknown]
